FAERS Safety Report 9847009 (Version 2)
Quarter: 2014Q1

REPORT INFORMATION
  Report Type: Report from Study
  Country: US (occurrence: US)
  Receive Date: 20140127
  Receipt Date: 20140127
  Transmission Date: 20141002
  Serious: Yes (Hospitalization)
  Sender: FDA-Public Use
  Company Number: US-B.I. PHARMACEUTICALS,INC./RIDGEFIELD-2014-BI-01935II

PATIENT
  Age: 63 Year
  Sex: Male
  Weight: 77.9 kg

DRUGS (2)
  1. MICARDIS [Suspect]
     Indication: CONGENITAL CYSTIC KIDNEY DISEASE
     Route: 048
     Dates: start: 20070711, end: 20131231
  2. MICARDIS [Suspect]
     Indication: HYPERTENSION
     Route: 048
     Dates: start: 20140115

REACTIONS (4)
  - Abdominal pain [Recovered/Resolved]
  - Renal failure acute [Recovered/Resolved]
  - Pyrexia [Recovered/Resolved]
  - Colitis [Recovered/Resolved]
